FAERS Safety Report 14419725 (Version 2)
Quarter: 2018Q1

REPORT INFORMATION
  Report Type: Spontaneous
  Country: US (occurrence: US)
  Receive Date: 20180122
  Receipt Date: 20180310
  Transmission Date: 20180509
  Serious: No
  Sender: FDA-Public Use
  Company Number: US-009507513-1801USA001439

PATIENT

DRUGS (1)
  1. EMEND (FOSAPREPITANT DIMEGLUMINE) [Suspect]
     Active Substance: FOSAPREPITANT DIMEGLUMINE
     Dosage: UNK
     Route: 042
     Dates: start: 20180102

REACTIONS (4)
  - Dyspnoea [Unknown]
  - Erythema [Unknown]
  - Flushing [Unknown]
  - Back pain [Unknown]

NARRATIVE: CASE EVENT DATE: 201801
